FAERS Safety Report 21323104 (Version 8)
Quarter: 2025Q1

REPORT INFORMATION
  Report Type: Report from Study
  Country: CA (occurrence: CA)
  Receive Date: 20220912
  Receipt Date: 20250103
  Transmission Date: 20250408
  Serious: Yes (Other)
  Sender: TAKEDA
  Company Number: CA-TAKEDA-2022TUS063031

PATIENT
  Sex: Male
  Weight: 97 kg

DRUGS (26)
  1. VEDOLIZUMAB [Suspect]
     Active Substance: VEDOLIZUMAB
     Indication: Crohn^s disease
  2. VEDOLIZUMAB [Suspect]
     Active Substance: VEDOLIZUMAB
  3. VEDOLIZUMAB [Suspect]
     Active Substance: VEDOLIZUMAB
  4. VEDOLIZUMAB [Suspect]
     Active Substance: VEDOLIZUMAB
  5. VEDOLIZUMAB [Suspect]
     Active Substance: VEDOLIZUMAB
  6. VEDOLIZUMAB [Suspect]
     Active Substance: VEDOLIZUMAB
  7. CYCLOSPORINE [Concomitant]
     Active Substance: CYCLOSPORINE
  8. MYFORTIC [Concomitant]
     Active Substance: MYCOPHENOLATE SODIUM
     Dosage: 350 MILLIGRAM, BID
  9. MYFORTIC [Concomitant]
     Active Substance: MYCOPHENOLATE SODIUM
     Dosage: UNK UNK, BID
  10. NIFEDIPINE [Concomitant]
     Active Substance: NIFEDIPINE
     Dosage: 60 MILLIGRAM, QD
  11. NIFEDIPINE [Concomitant]
     Active Substance: NIFEDIPINE
     Dosage: UNK UNK, QD
  12. ENALAPRIL [Concomitant]
     Active Substance: ENALAPRIL
     Dosage: 10 MILLIGRAM, BID
  13. PREDNISONE [Concomitant]
     Active Substance: PREDNISONE
     Dosage: 15 MILLIGRAM, QOD
  14. PREDNISONE [Concomitant]
     Active Substance: PREDNISONE
  15. Cortiment [Concomitant]
     Dosage: 9 MILLIGRAM, QD
  16. JAMIESON PROBIOTIC [Concomitant]
     Dosage: UNK UNK, QD
  17. CANDESARTAN [Concomitant]
     Active Substance: CANDESARTAN
  18. FUROSEMIDE [Concomitant]
     Active Substance: FUROSEMIDE
  19. SULFATRIM [Concomitant]
     Active Substance: SULFAMETHOXAZOLE\TRIMETHOPRIM
  20. BISOPROLOL [Concomitant]
     Active Substance: BISOPROLOL
  21. CLOBETASOL [Concomitant]
     Active Substance: CLOBETASOL
  22. APIXABAN [Concomitant]
     Active Substance: APIXABAN
  23. ALLOPURINOL [Concomitant]
     Active Substance: ALLOPURINOL
  24. SODIUM BICARBONATE [Concomitant]
     Active Substance: SODIUM BICARBONATE
  25. SILDENAFIL [Concomitant]
     Active Substance: SILDENAFIL
  26. FERROUS GLUCONATE [Concomitant]
     Active Substance: FERROUS GLUCONATE

REACTIONS (6)
  - Renal impairment [Not Recovered/Not Resolved]
  - Abdominal discomfort [Not Recovered/Not Resolved]
  - Defaecation urgency [Not Recovered/Not Resolved]
  - Frequent bowel movements [Not Recovered/Not Resolved]
  - Blood pressure increased [Not Recovered/Not Resolved]
  - Feeling abnormal [Not Recovered/Not Resolved]
